FAERS Safety Report 6066636-X (Version None)
Quarter: 2009Q1

REPORT INFORMATION
  Report Type: 
  Country: None (occurrence: None)
  Receive Date: 20090205
  Receipt Date: 20090129
  Transmission Date: 20090719
  Serious: Yes (Other)
  Sender: FDA-Public Use
  Company Number: US-JNJCH-2008055313

PATIENT
  Age: 62 Year
  Sex: Female
  Weight: 59 kg

DRUGS (1)
  1. BENGAY VANISHING [Suspect]
     Indication: PAIN IN EXTREMITY
     Dosage: TEXT:^A LITTLE^ ONCE
     Route: 061

REACTIONS (5)
  - APPLICATION SITE ERYTHEMA [None]
  - APPLICATION SITE PARAESTHESIA [None]
  - CAUSTIC INJURY [None]
  - EXPIRED DRUG ADMINISTERED [None]
  - PAIN [None]
